FAERS Safety Report 5154977-X (Version None)
Quarter: 2006Q4

REPORT INFORMATION
  Report Type: 
  Country: None (occurrence: None)
  Receive Date: 20061120
  Receipt Date: 20061120
  Transmission Date: 20070319
  Serious: No
  Sender: FDA-Public Use
  Company Number: None

PATIENT
  Age: 44 Year
  Sex: Female
  Weight: 68.0396 kg

DRUGS (1)
  1. 8HOUR PAIN RELIVER KROGER BRAND  100 CAPLETS-650MGS   KROGER-5JE0380 [Suspect]
     Indication: PYREXIA
     Dosage: 2        2X''S A DAY
     Dates: start: 20061001, end: 20061117

REACTIONS (3)
  - JAW DISORDER [None]
  - PHARMACEUTICAL PRODUCT COMPLAINT [None]
  - THERAPEUTIC PRODUCT CONTAMINATION [None]
